FAERS Safety Report 20727368 (Version 1)
Quarter: 2022Q2

REPORT INFORMATION
  Report Type: Spontaneous
  Country: US (occurrence: None)
  Receive Date: 20220419
  Receipt Date: 20220419
  Transmission Date: 20220721
  Serious: No
  Sender: FDA-Public Use
  Company Number: US-ROCHE-2859533

PATIENT
  Sex: Female
  Weight: 49.486 kg

DRUGS (6)
  1. KADCYLA [Suspect]
     Active Substance: ADO-TRASTUZUMAB EMTANSINE
     Indication: Breast cancer recurrent
     Route: 042
     Dates: start: 20210513
  2. TACROLIMUS [Concomitant]
     Active Substance: TACROLIMUS
     Indication: Heart transplant
     Dosage: TWO IN THE MORNING AND TWO IN THE EVENING
  3. TACROLIMUS [Concomitant]
     Active Substance: TACROLIMUS
     Dosage: DOSAGE INFO : 1MG AND 0.5MG
  4. PREDNISONE [Concomitant]
     Active Substance: PREDNISONE
     Indication: Heart transplant
     Dates: start: 1988
  5. VITAMIN C [Concomitant]
     Active Substance: ASCORBIC ACID
  6. MAGNESIUM [Concomitant]
     Active Substance: MAGNESIUM

REACTIONS (1)
  - Dry mouth [Unknown]
